FAERS Safety Report 5293105-7 (Version None)
Quarter: 2007Q2

REPORT INFORMATION
  Report Type: 
  Country: None (occurrence: None)
  Receive Date: 20070411
  Receipt Date: 20070406
  Transmission Date: 20071010
  Serious: Yes (Death)
  Sender: FDA-Public Use
  Company Number: HU-BAYER-200712023GDS

PATIENT
  Age: 44 Year
  Sex: Male
  Weight: 75 kg

DRUGS (3)
  1. AVELOX [Suspect]
     Indication: PNEUMONIA
     Dosage: TOTAL DAILY DOSE: 400 MG  UNIT DOSE: 400 MG
     Route: 042
     Dates: start: 20070327, end: 20070404
  2. AMBROXOL [Concomitant]
     Indication: COUGH
     Route: 065
  3. TAVANIC [Concomitant]
     Indication: PNEUMONIA
     Route: 048
     Dates: start: 20070326, end: 20070326

REACTIONS (4)
  - CARDIOPULMONARY FAILURE [None]
  - DRUG INEFFECTIVE [None]
  - SEPSIS [None]
  - STREPTOCOCCAL SEPSIS [None]
